FAERS Safety Report 8449572-0 (Version None)
Quarter: 2012Q2

REPORT INFORMATION
  Report Type: 
  Country: None (occurrence: None)
  Receive Date: 20120620
  Receipt Date: 20120615
  Transmission Date: 20120825
  Serious: Yes (Life-Threatening, Hospitalization, Other)
  Sender: FDA-Public Use
  Company Number: DE-BIOGENIDEC-2011BI029274

PATIENT
  Age: 46 Year
  Sex: Female
  Weight: 49 kg

DRUGS (8)
  1. OXYCODONE HCL [Concomitant]
     Indication: PAIN
     Dates: start: 20100801
  2. UNKNOWN CONTRACEPTIVE [Concomitant]
     Indication: CONTRACEPTION
  3. PANTOPRAZOLE [Concomitant]
     Dates: start: 20110802
  4. PANTOPRAZOLE [Concomitant]
     Route: 048
     Dates: start: 20110826, end: 20111025
  5. TYSABRI [Suspect]
     Indication: MULTIPLE SCLEROSIS
     Route: 042
     Dates: start: 20080313, end: 20110616
  6. PANTOPRAZOLE [Concomitant]
     Route: 048
     Dates: start: 20110826, end: 20111025
  7. OXYCODONE HCL [Concomitant]
     Route: 048
     Dates: start: 20110830
  8. PANTOPRAZOLE [Concomitant]
     Indication: GASTROOESOPHAGEAL REFLUX DISEASE
     Dates: start: 20110802

REACTIONS (2)
  - PROGRESSIVE MULTIFOCAL LEUKOENCEPHALOPATHY [None]
  - IMMUNE RECONSTITUTION SYNDROME [None]
